FAERS Safety Report 10197148 (Version 2)
Quarter: 2014Q2

REPORT INFORMATION
  Report Type: Report from Study
  Country: AR (occurrence: AR)
  Receive Date: 20140527
  Receipt Date: 20140530
  Transmission Date: 20141212
  Serious: Yes (Death)
  Sender: FDA-Public Use
  Company Number: PHHY2014AR063527

PATIENT
  Sex: Male

DRUGS (1)
  1. AMN107 [Suspect]
     Dosage: 600 MG, PER DAY
     Route: 048
     Dates: start: 20121110, end: 20130318

REACTIONS (6)
  - Malignant neoplasm progression [Fatal]
  - Blast crisis in myelogenous leukaemia [Fatal]
  - Central nervous system leukaemia [Fatal]
  - Chloroma [Fatal]
  - Drug ineffective [Unknown]
  - Gene mutation identification test positive [Unknown]
